FAERS Safety Report 5701692-7 (Version None)
Quarter: 2008Q2

REPORT INFORMATION
  Report Type: 
  Country: None (occurrence: None)
  Receive Date: 20080408
  Receipt Date: 20080402
  Transmission Date: 20081010
  Serious: Yes (Hospitalization, Other)
  Sender: FDA-Public Use
  Company Number: 2008SP006415

PATIENT
  Age: 59 Year
  Sex: Male
  Weight: 80.7403 kg

DRUGS (2)
  1. PEG-INTRON [Suspect]
     Indication: HEPATITIS C
     Dosage: SC
     Route: 058
     Dates: start: 20080201
  2. RIBAVIRIN [Suspect]
     Indication: HEPATITIS C
     Dosage: PO
     Route: 048
     Dates: start: 20080201

REACTIONS (11)
  - ANOREXIA [None]
  - CHILLS [None]
  - DEPRESSION [None]
  - EYE HAEMORRHAGE [None]
  - EYE PAIN [None]
  - FAILURE OF IMPLANT [None]
  - INFLUENZA LIKE ILLNESS [None]
  - INSOMNIA [None]
  - MUSCULOSKELETAL STIFFNESS [None]
  - POST PROCEDURAL COMPLICATION [None]
  - WEIGHT DECREASED [None]
